FAERS Safety Report 4387844-X (Version None)
Quarter: 2004Q2

REPORT INFORMATION
  Report Type: 
  Country: None (occurrence: None)
  Receive Date: 20040623
  Receipt Date: 20040607
  Transmission Date: 20050107
  Serious: Yes (Other)
  Sender: FDA-Public Use
  Company Number: USA031050418

PATIENT
  Age: 60 Year
  Sex: Female
  Weight: 73 kg

DRUGS (2)
  1. FORTEO [Suspect]
     Indication: OSTEOPOROSIS
     Dates: start: 20030801
  2. COUMADIN [Concomitant]

REACTIONS (6)
  - BACK PAIN [None]
  - FALL [None]
  - HIP FRACTURE [None]
  - MEDICATION ERROR [None]
  - MUSCLE CRAMP [None]
  - NAUSEA [None]
